FAERS Safety Report 21450497 (Version 1)
Quarter: 2022Q4

REPORT INFORMATION
  Report Type: Spontaneous
  Country: US (occurrence: US)
  Receive Date: 20221013
  Receipt Date: 20221013
  Transmission Date: 20230113
  Serious: No
  Sender: FDA-Public Use
  Company Number: None

PATIENT
  Sex: Female

DRUGS (3)
  1. ZILEUTON [Suspect]
     Active Substance: ZILEUTON
     Indication: NSAID exacerbated respiratory disease
     Route: 065
  2. MONTELUKAST [Suspect]
     Active Substance: MONTELUKAST SODIUM
     Indication: NSAID exacerbated respiratory disease
     Route: 065
  3. PREDNISONE [Suspect]
     Active Substance: PREDNISONE
     Indication: NSAID exacerbated respiratory disease
     Route: 065

REACTIONS (1)
  - Treatment failure [Unknown]
